FAERS Safety Report 14661402 (Version 2)
Quarter: 2018Q2

REPORT INFORMATION
  Report Type: Spontaneous
  Country: BE (occurrence: BE)
  Receive Date: 20180320
  Receipt Date: 20180412
  Transmission Date: 20180711
  Serious: Yes (Hospitalization)
  Sender: FDA-Public Use
  Company Number: BE-LPDUSPRD-20180307

PATIENT
  Age: 50 Year
  Sex: Female

DRUGS (10)
  1. FERINJECT [Suspect]
     Active Substance: FERRIC CARBOXYMALTOSE
     Dosage: UNKNOWN
     Route: 065
  2. SILDENAFIL. [Concomitant]
     Active Substance: SILDENAFIL
     Dosage: UNKNOWN
     Route: 065
  3. VENOFER [Suspect]
     Active Substance: IRON SUCROSE
     Dosage: UNKNOWN
     Route: 065
  4. POTASSIUM [Suspect]
     Active Substance: POTASSIUM
     Dosage: UNKNOWN
     Route: 065
  5. EPOPROSTENOL. [Suspect]
     Active Substance: EPOPROSTENOL
     Dosage: UNKNOWN
     Route: 048
  6. PANTOPRAZOLE [Concomitant]
     Active Substance: PANTOPRAZOLE
     Dosage: 40 MG, QD (40 MG, 1 D)
     Route: 065
  7. PROLIA [Suspect]
     Active Substance: DENOSUMAB
     Dosage: 60 MG, 1 IN 6 M
     Route: 065
  8. VITAMIN D [Concomitant]
     Active Substance: CHOLECALCIFEROL
     Dosage: 25000 IU
     Route: 065
  9. CALCIUM CARBONATE. [Concomitant]
     Active Substance: CALCIUM CARBONATE
     Dosage: 1250 MG, 1 IN 1 D
     Route: 065
  10. MALTOFER [Suspect]
     Active Substance: IRON POLYMALTOSE
     Dosage: UNKNOWN
     Route: 048

REACTIONS (8)
  - Diarrhoea [Unknown]
  - Paraesthesia [Unknown]
  - Osteomalacia [Unknown]
  - Hypocalcaemia [Unknown]
  - Malabsorption [Unknown]
  - Pain in jaw [Unknown]
  - Hyperparathyroidism secondary [Unknown]
  - Hypophosphataemia [Unknown]
